FAERS Safety Report 4558643-0 (Version None)
Quarter: 2005Q1

REPORT INFORMATION
  Report Type: 
  Country: None (occurrence: None)
  Receive Date: 20050121
  Receipt Date: 20050111
  Transmission Date: 20050727
  Serious: Yes (Other)
  Sender: FDA-Public Use
  Company Number: JP-JNJFOC-20040602002

PATIENT
  Sex: Female

DRUGS (18)
  1. RISPERDAL [Suspect]
     Route: 049
  2. RISPERDAL [Suspect]
     Indication: SCHIZOPHRENIA
     Route: 049
  3. ANTIBIOTICS NOS [Suspect]
     Indication: DRUG USE FOR UNKNOWN INDICATION
  4. MOSAPRIDE CITRATE [Concomitant]
     Indication: REFLUX OESOPHAGITIS
     Route: 049
  5. ITOPRIDE HYDROCHLORIDE [Concomitant]
     Indication: REFLUX OESOPHAGITIS
     Route: 049
  6. RILMAZAFONE HYDROCHLORIDE [Concomitant]
     Route: 049
  7. ECABET SODIUM [Concomitant]
     Indication: REFLUX OESOPHAGITIS
     Route: 049
  8. TEPRENONE [Concomitant]
     Route: 049
  9. SODIUM ALGINATE [Concomitant]
     Indication: REFLUX OESOPHAGITIS
     Route: 049
  10. LANSOPRAZOLE [Concomitant]
     Indication: REFLUX OESOPHAGITIS
     Route: 049
  11. PROMETHAZINE HCL [Concomitant]
     Route: 049
  12. AMEZINIUM METILSULFATE [Concomitant]
     Route: 049
  13. AMEZINIUM METILSULFATE [Concomitant]
     Indication: ORTHOSTATIC HYPOTENSION
     Route: 049
  14. MAGNESIUM OXIDE [Concomitant]
     Indication: CONSTIPATION
     Route: 049
  15. FLAVOXATE HYDROCHLORIDE [Concomitant]
     Route: 049
  16. FLAVOXATE HYDROCHLORIDE [Concomitant]
     Indication: POLLAKIURIA
     Route: 049
  17. ANTIBIOTICS [Concomitant]
     Route: 065
  18. FERROUS SULFATE TAB [Concomitant]

REACTIONS (6)
  - BLOOD AMYLASE INCREASED [None]
  - DIABETES MELLITUS [None]
  - HEPATIC FUNCTION ABNORMAL [None]
  - HYPERCHOLESTEROLAEMIA [None]
  - IRON DEFICIENCY ANAEMIA [None]
  - NASOPHARYNGITIS [None]
